FAERS Safety Report 8572997 (Version 2)
Quarter: 2012Q4

REPORT INFORMATION
  Report Type: 
  Country: US (occurrence: US)
  Receive Date: 20120522
  Receipt Date: 20121108
  Transmission Date: 20130627
  Serious: Yes (Other)
  Sender: FDA-Public Use
  Company Number: US-BAYER-2012-049405

PATIENT
  Age: 28 Year
  Sex: Female
  Weight: 110 kg

DRUGS (3)
  1. YAZ [Suspect]
     Dosage: UNK
  2. YASMIN [Suspect]
     Dosage: UNK
     Dates: start: 200901, end: 201008
  3. OCELLA [Suspect]
     Dosage: UNK
     Dates: start: 200901, end: 201008

REACTIONS (3)
  - Thrombosis [None]
  - Thrombosis [None]
  - Injury [None]
